FAERS Safety Report 4304073-6 (Version None)
Quarter: 2004Q1

REPORT INFORMATION
  Report Type: 
  Country: None (occurrence: None)
  Receive Date: 20040225
  Receipt Date: 20040225
  Transmission Date: 20041129
  Serious: Yes (Death, Life-Threatening, Hospitalization, Disabling)
  Sender: FDA-Public Use
  Company Number: None

PATIENT
  Age: 63 Year
  Sex: Female

DRUGS (1)
  1. ZELNORM [Suspect]
     Indication: GASTRIC NEOPLASM
     Dates: start: 20030704, end: 20030712

REACTIONS (4)
  - ABDOMINAL ADHESIONS [None]
  - DEHYDRATION [None]
  - GASTRIC HYPOMOTILITY [None]
  - HUNGER [None]
